FAERS Safety Report 9108518 (Version 1)
Quarter: 2013Q1

REPORT INFORMATION
  Report Type: Spontaneous
  Country: US (occurrence: US)
  Receive Date: 20130222
  Receipt Date: 20130222
  Transmission Date: 20140127
  Serious: No
  Sender: FDA-Public Use
  Company Number: US-BIOGENIDEC-2013BI015224

PATIENT
  Sex: Male

DRUGS (2)
  1. AVONEX [Suspect]
     Indication: MULTIPLE SCLEROSIS
     Route: 030
     Dates: start: 20011026
  2. MOTRIN [Concomitant]

REACTIONS (3)
  - White blood cell count abnormal [Recovered/Resolved]
  - Hepatic enzyme increased [Recovered/Resolved]
  - Arthritis [Recovered/Resolved]
